FAERS Safety Report 6920733-2 (Version None)
Quarter: 2010Q3

REPORT INFORMATION
  Report Type: 
  Country: None (occurrence: None)
  Receive Date: 20100812
  Receipt Date: 20100805
  Transmission Date: 20110219
  Serious: Yes (Death, Other)
  Sender: FDA-Public Use
  Company Number: JP-BAYER-201011334BYL

PATIENT
  Age: 75 Year
  Sex: Male
  Weight: 73 kg

DRUGS (3)
  1. NEXAVAR [Suspect]
     Indication: HEPATIC NEOPLASM MALIGNANT
     Dosage: TOTAL DAILY DOSE: 800 MG  UNIT DOSE: 200 MG
     Route: 048
     Dates: start: 20100315, end: 20100624
  2. LASIX [Concomitant]
     Route: 041
  3. LASIX [Concomitant]
     Route: 048

REACTIONS (2)
  - HEPATIC ENCEPHALOPATHY [None]
  - INTERSTITIAL LUNG DISEASE [None]
